FAERS Safety Report 25584696 (Version 1)
Quarter: 2025Q3

REPORT INFORMATION
  Report Type: Other
  Country: GB (occurrence: GB)
  Receive Date: 20250721
  Receipt Date: 20250721
  Transmission Date: 20251020
  Serious: Yes (Hospitalization, Disabling, Other)
  Sender: MACLEODS
  Company Number: GB-MHRA-EMIS-1069-3f549948-dc86-426b-b09b-addcb7b5aa46

PATIENT

DRUGS (4)
  1. RIVAROXABAN [Suspect]
     Active Substance: RIVAROXABAN
     Indication: Deep vein thrombosis
     Dosage: ONE TO BE TAKEN EACH DAY
     Route: 065
  2. Hydrocortisone 1%/Miconazole 2% [Concomitant]
     Indication: Product used for unknown indication
     Route: 065
     Dates: start: 20250611
  3. NITROFURANTOIN [Concomitant]
     Active Substance: NITROFURANTOIN
     Indication: Product used for unknown indication
     Dosage: ONE TO BE TAKEN TWICE A ....
     Route: 065
     Dates: start: 20250611
  4. Hydromol [Concomitant]
     Indication: Adverse drug reaction
     Dosage: APPLY TWICE DAILY TO SKIN AS EMOLLIENT
     Route: 065
     Dates: start: 20250611

REACTIONS (4)
  - Subarachnoid haemorrhage [Recovering/Resolving]
  - Facial paralysis [Unknown]
  - Aphasia [Unknown]
  - Confusional state [Unknown]

NARRATIVE: CASE EVENT DATE: 20250619
